FAERS Safety Report 10949336 (Version 1)
Quarter: 2015Q1

REPORT INFORMATION
  Report Type: Spontaneous
  Country: None (occurrence: None)
  Receive Date: 20150323
  Receipt Date: 20150323
  Transmission Date: 20150721
  Serious: Yes (Life-Threatening, Hospitalization, Disabling, Other)
  Sender: FDA-Public Use
  Company Number: None

PATIENT
  Age: 23 Year
  Sex: Female
  Weight: 63.5 kg

DRUGS (2)
  1. MIRENA [Suspect]
     Active Substance: LEVONORGESTREL
  2. VITAMINS [Concomitant]
     Active Substance: VITAMINS

REACTIONS (8)
  - Vaginal haemorrhage [None]
  - Uterine perforation [None]
  - Post procedural haemorrhage [None]
  - Arthralgia [None]
  - Pregnancy [None]
  - Caesarean section [None]
  - Scar [None]
  - Placenta praevia [None]

NARRATIVE: CASE EVENT DATE: 20100520
